FAERS Safety Report 9237487 (Version 2)
Quarter: 2013Q2

REPORT INFORMATION
  Report Type: Spontaneous
  Country: US (occurrence: US)
  Receive Date: 20130417
  Receipt Date: 20130515
  Transmission Date: 20140414
  Serious: No
  Sender: FDA-Public Use
  Company Number: US-TEVA-395403USA

PATIENT
  Age: 38 Year
  Sex: Male
  Weight: 104.42 kg

DRUGS (11)
  1. NUVIGIL [Suspect]
     Indication: NARCOLEPSY
     Route: 048
     Dates: start: 201211
  2. NUVIGIL [Suspect]
     Dosage: 150 MILLIGRAM DAILY;
     Route: 048
     Dates: start: 201210, end: 201211
  3. NUVIGIL [Suspect]
     Dosage: 250 MILLIGRAM DAILY;
     Route: 048
  4. NUVIGIL [Suspect]
     Dosage: 500 MILLIGRAM DAILY;
     Route: 048
     Dates: start: 2013
  5. NUVIGIL [Suspect]
     Dosage: 150 MILLIGRAM DAILY;
     Route: 048
  6. TEMAZEPAM [Concomitant]
     Dosage: 15 MILLIGRAM DAILY; AT BEDTIME AS NEEDED
     Route: 048
  7. CARBIDOPA W/LEVODOPA [Concomitant]
     Indication: RESTLESS LEGS SYNDROME
     Dosage: 1 TABLET DAILY; 25 MG/100 MG AT BEDTIME
     Route: 048
  8. LIPITOR [Concomitant]
     Dosage: 40 MILLIGRAM DAILY;
     Route: 048
  9. ALPRAZOLAM [Concomitant]
     Dosage: 3 MILLIGRAM DAILY;
     Route: 048
  10. BENTYL [Concomitant]
     Dosage: 30 MILLIGRAM DAILY;
     Route: 048
  11. FLONASE [Concomitant]
     Dosage: 1 SPRAY IN EACH NOSTRIL
     Route: 045

REACTIONS (9)
  - Disinhibition [Recovered/Resolved]
  - Personality change [Recovered/Resolved]
  - Nausea [Recovered/Resolved]
  - Irritability [Unknown]
  - Migraine [Unknown]
  - Memory impairment [Unknown]
  - Fatigue [Unknown]
  - Drug effect decreased [Unknown]
  - Incorrect dose administered [Recovered/Resolved]
